FAERS Safety Report 23367643 (Version 5)
Quarter: 2025Q3

REPORT INFORMATION
  Report Type: Report from Study
  Country: CN (occurrence: CN)
  Receive Date: 20240104
  Receipt Date: 20250722
  Transmission Date: 20251020
  Serious: Yes (Hospitalization)
  Sender: ELI LILLY AND COMPANY
  Company Number: CN-ELI_LILLY_AND_COMPANY-CN202312013338

PATIENT
  Age: 67 Year
  Sex: Male
  Weight: 62 kg

DRUGS (20)
  1. RAMUCIRUMAB [Suspect]
     Active Substance: RAMUCIRUMAB
     Indication: Gastric cancer
     Dosage: 500 MG, DAILY
     Route: 050
     Dates: start: 20231017, end: 20231030
  2. RAMUCIRUMAB [Suspect]
     Active Substance: RAMUCIRUMAB
     Dosage: 500 MG, DAILY
     Route: 050
     Dates: start: 20231221
  3. TEGAFUR [Concomitant]
     Active Substance: TEGAFUR
     Indication: Gastric cancer
     Route: 065
     Dates: start: 20231017, end: 20231030
  4. GIMERACIL [Concomitant]
     Active Substance: GIMERACIL
     Indication: Gastric cancer
     Route: 065
     Dates: start: 20231017, end: 20231030
  5. OTERACIL POTASSIUM [Concomitant]
     Active Substance: OTERACIL POTASSIUM
     Indication: Gastric cancer
     Route: 065
     Dates: start: 20231017, end: 20231030
  6. FAT EMULSION, AMINO ACIDS (17) AND GLUCOSE (1 [Concomitant]
     Indication: Nutritional supplementation
     Dosage: 1920 ML, DAILY
     Route: 042
     Dates: start: 20231030, end: 20231030
  7. FAT EMULSION, AMINO ACIDS (17) AND GLUCOSE (1 [Concomitant]
     Dosage: 1440 ML, DAILY
     Route: 042
     Dates: start: 20231031, end: 20231031
  8. FAT EMULSION, AMINO ACIDS (17) AND GLUCOSE (1 [Concomitant]
     Dosage: 1920 ML, DAILY
     Route: 042
     Dates: start: 20231101, end: 20231101
  9. FAT EMULSION, AMINO ACIDS (17) AND GLUCOSE (1 [Concomitant]
     Dosage: 1440 ML, DAILY
     Route: 042
     Dates: start: 20231102, end: 20231110
  10. INTRAVENOUS POTASSIUM CHLORIDE [POTASSIUM CHL [Concomitant]
     Indication: Nutritional supplementation
     Dosage: 1 G, DAILY
     Route: 042
     Dates: start: 20231030, end: 20231109
  11. INTRAVENOUS POTASSIUM CHLORIDE [POTASSIUM CHL [Concomitant]
     Dosage: 2 G, DAILY
     Route: 042
     Dates: start: 20231109, end: 20231110
  12. INTRAVENOUS POTASSIUM CHLORIDE [POTASSIUM CHL [Concomitant]
     Dosage: 1 G, DAILY
     Dates: start: 20231114, end: 20231121
  13. INSULIN NOS [Concomitant]
     Active Substance: INSULIN NOS
     Indication: Nutritional supplementation
     Dosage: 15 INTERNATIONAL UNIT, DAILY
     Route: 042
     Dates: start: 20231030, end: 20231031
  14. INSULIN NOS [Concomitant]
     Active Substance: INSULIN NOS
     Dosage: 25 INTERNATIONAL UNIT, DAILY
     Dates: start: 20231101, end: 20231101
  15. INSULIN NOS [Concomitant]
     Active Substance: INSULIN NOS
     Dosage: 5 ML, DAILY
     Route: 042
     Dates: start: 20231102, end: 20231110
  16. INSULIN NOS [Concomitant]
     Active Substance: INSULIN NOS
     Dosage: 15 INTERNATIONAL UNIT, DAILY
     Route: 042
     Dates: start: 20231111, end: 20231121
  17. ERGOCALCIFEROL\PHYTONADIONE\RETINOL\TOCOPHEROL [Concomitant]
     Active Substance: ERGOCALCIFEROL\PHYTONADIONE\RETINOL\TOCOPHEROL
     Indication: Nutritional supplementation
     Dosage: UNK UNK, DAILY
     Route: 042
     Dates: start: 20231111, end: 20231121
  18. FISH OIL [Concomitant]
     Active Substance: FISH OIL
     Indication: Nutritional supplementation
     Dosage: 100 ML, DAILY
     Route: 042
     Dates: start: 20231109, end: 20231121
  19. ASCORBIC ACID;RIBOFLAVIN;VITAMIN B1 NOS [Concomitant]
     Indication: Nutritional supplementation
     Dosage: UNK, DAILY
     Route: 042
     Dates: start: 20231109, end: 20231110
  20. CEFMETAZOLE SODIUM [Concomitant]
     Active Substance: CEFMETAZOLE SODIUM
     Indication: Antiinflammatory therapy
     Dosage: 2 G, DAILY
     Route: 042
     Dates: start: 20231113, end: 20231113

REACTIONS (5)
  - Abdominal pain upper [Recovered/Resolved]
  - Hypoalbuminaemia [Recovered/Resolved]
  - Albuminuria [Not Recovered/Not Resolved]
  - Anaemia [Not Recovered/Not Resolved]
  - Pneumonia [Recovered/Resolved]

NARRATIVE: CASE EVENT DATE: 20231020
